FAERS Safety Report 9875536 (Version 1)
Quarter: 2013Q2

REPORT INFORMATION
  Report Type: Spontaneous
  Country: US (occurrence: None)
  Receive Date: 20121107
  Receipt Date: 20121107
  Transmission Date: 20140414
  Serious: Yes (Other)
  Sender: FDA-Public Use
  Company Number: 2012HGS-003781

PATIENT
  Age: 50 Year
  Sex: Female

DRUGS (7)
  1. BENLYSTA [Suspect]
     Indication: SYSTEMIC LUPUS ERYTHEMATOSUS
     Dates: start: 20120614, end: 20120614
  2. PLAQUENIL (HYDROXYCHLOROQUINE PHOSPHATE) [Concomitant]
  3. PREDNISONE (PREDNISONE) [Concomitant]
  4. NEXIUM (ESOMEPRAZOLE MAGNESIUM) [Concomitant]
  5. ZOFRAN (ONDANSETRON) [Concomitant]
  6. VITAMIN B (VITAMIN B COMPLEX) [Concomitant]
  7. MULTIVITAMIN (THERAGRAN (ASCORBIC ACID, PYRIDOXINE HYDROCHLORIDE, TOCOPHERYL ACETATE, THIAMINE HYDROCHLORIDE, COLECALCIFEROL, CYANOCOBALAMIN, RETINOL, RIBOFLAVIN, NICOTINAMJIDE, CALCIUM PANTOTHENATE) [Concomitant]

REACTIONS (6)
  - Hypersensitivity [None]
  - Burning sensation [None]
  - Pruritus [None]
  - Oedema mouth [None]
  - Lip swelling [None]
  - Gingival swelling [None]
